FAERS Safety Report 12622647 (Version 3)
Quarter: 2016Q3

REPORT INFORMATION
  Report Type: Report from Study
  Country: GB (occurrence: GB)
  Receive Date: 20160804
  Receipt Date: 20160912
  Transmission Date: 20161109
  Serious: Yes (Hospitalization, Other)
  Sender: FDA-Public Use
  Company Number: GB-ABBVIE-16K-167-1664185-00

PATIENT
  Age: 54 Year
  Sex: Female
  Weight: 127 kg

DRUGS (12)
  1. PREGABALIN. [Concomitant]
     Active Substance: PREGABALIN
     Indication: ANALGESIC THERAPY
     Dates: start: 20140506
  2. ATORVASTIN [Concomitant]
     Active Substance: ATORVASTATIN
     Indication: HYPERLIPIDAEMIA
     Dosage: INE BEFORE MEALS
     Route: 048
  3. METHOTREXATE. [Concomitant]
     Active Substance: METHOTREXATE
     Indication: PSORIATIC ARTHROPATHY
  4. TAPENTADOL [Concomitant]
     Active Substance: TAPENTADOL
     Dosage: 1-2 AS REQUIRED 3 TIMES/DAY
     Route: 048
     Dates: start: 20160608
  5. OMEPRAZOLE. [Concomitant]
     Active Substance: OMEPRAZOLE
     Indication: GASTROINTESTINAL DISORDER
     Dates: start: 20160629
  6. TAPENTADOL [Concomitant]
     Active Substance: TAPENTADOL
     Indication: ANALGESIC THERAPY
     Route: 048
     Dates: start: 20160608
  7. HUMIRA [Suspect]
     Active Substance: ADALIMUMAB
     Indication: PSORIATIC ARTHROPATHY
     Dosage: LOADING DOSE
     Route: 058
     Dates: start: 20160606, end: 20160606
  8. METHOTREXATE. [Concomitant]
     Active Substance: METHOTREXATE
     Indication: PSORIASIS
     Route: 058
     Dates: start: 20160205
  9. AMITRIPTYLINE [Concomitant]
     Active Substance: AMITRIPTYLINE
     Indication: DEPRESSION
     Route: 048
     Dates: start: 20160608
  10. VENLAFAXINE [Concomitant]
     Active Substance: VENLAFAXINE HYDROCHLORIDE
     Indication: DEPRESSION
     Dosage: AT 3AM AND 2 PM
     Route: 048
     Dates: start: 20090907
  11. HUMIRA [Suspect]
     Active Substance: ADALIMUMAB
     Indication: PSORIASIS
  12. ZOPLICONE [Concomitant]
     Active Substance: ZOPICLONE
     Indication: DEPRESSION
     Dates: start: 20100827

REACTIONS (7)
  - Blood pressure increased [Unknown]
  - Blood pressure increased [Unknown]
  - Blindness transient [Recovered/Resolved]
  - Limb discomfort [Recovered/Resolved]
  - Transient ischaemic attack [Unknown]
  - Migraine [Unknown]
  - Carotid arteriosclerosis [Unknown]

NARRATIVE: CASE EVENT DATE: 2016
